FAERS Safety Report 9121411 (Version 4)
Quarter: 2013Q2

REPORT INFORMATION
  Report Type: Spontaneous
  Country: US (occurrence: US)
  Receive Date: 20130225
  Receipt Date: 20130425
  Transmission Date: 20140414
  Serious: Yes (Other)
  Sender: FDA-Public Use
  Company Number: US-PFIZER INC-2013068250

PATIENT
  Age: 57 Year
  Sex: Female
  Weight: 68.03 kg

DRUGS (8)
  1. LYRICA [Suspect]
     Indication: NEURALGIA
     Dosage: 50 MG, 1X/DAY (QHS)
     Route: 048
     Dates: start: 20130129, end: 20130131
  2. LYRICA [Suspect]
     Indication: NEUROPATHY PERIPHERAL
     Dosage: 50 MG, 2X/DAY
     Route: 048
     Dates: start: 20130201, end: 20130203
  3. LYRICA [Suspect]
     Dosage: 50 MG, 3X/DAY
     Route: 048
     Dates: start: 20130204, end: 20130221
  4. BENICAR [Concomitant]
     Indication: HYPERTENSION
     Dosage: 50 MG/DAY
  5. PREDNISONE [Concomitant]
     Dosage: UNK
     Dates: end: 20130129
  6. ACTIVELLA [Concomitant]
     Dosage: UNK
  7. FLECAINIDE [Concomitant]
     Dosage: UNK
  8. LEVOTHYROXINE [Concomitant]

REACTIONS (9)
  - Faecaloma [Not Recovered/Not Resolved]
  - Abdominal distension [Not Recovered/Not Resolved]
  - Headache [Not Recovered/Not Resolved]
  - Increased appetite [Not Recovered/Not Resolved]
  - Somnolence [Not Recovered/Not Resolved]
  - Dizziness [Not Recovered/Not Resolved]
  - Fatigue [Not Recovered/Not Resolved]
  - Weight increased [Not Recovered/Not Resolved]
  - Euphoric mood [Not Recovered/Not Resolved]
